FAERS Safety Report 4511026-1 (Version None)
Quarter: 2004Q4

REPORT INFORMATION
  Report Type: 
  Country: None (occurrence: None)
  Receive Date: 20041018
  Receipt Date: 20040707
  Transmission Date: 20050328
  Serious: No
  Sender: FDA-Public Use
  Company Number: 207667

PATIENT
  Age: 42 Year
  Sex: Female
  Weight: 81.2 kg

DRUGS (8)
  1. XOLAIR [Suspect]
     Indication: ASTHMA
     Dosage: 300 MG, Q4W, SUBCUTANEOUS
     Route: 058
     Dates: start: 20040426, end: 20040524
  2. FLOVENT [Concomitant]
  3. RHINOCORT AQUA (BUDESONIDE) [Concomitant]
  4. ALLEGRA [Concomitant]
  5. SINGULAIR [Concomitant]
  6. NEXIUM [Concomitant]
  7. ALBUTEROL NEBULIZER (ALBUTEROL SULFATE, ALBUTEROL) [Concomitant]
  8. MAXAIR [Concomitant]

REACTIONS (3)
  - DISTURBANCE IN ATTENTION [None]
  - DIZZINESS [None]
  - HEADACHE [None]
